FAERS Safety Report 10155963 (Version 3)
Quarter: 2015Q3

REPORT INFORMATION
  Report Type: Spontaneous
  Country: US (occurrence: US)
  Receive Date: 20140506
  Receipt Date: 20150817
  Transmission Date: 20151125
  Serious: No
  Sender: FDA-Public Use
  Company Number: US-GILEAD-2014-0101642

PATIENT
  Age: 60 Year
  Sex: Female

DRUGS (2)
  1. CELLCEPT [Concomitant]
     Active Substance: MYCOPHENOLATE MOFETIL\MYCOPHENOLATE MOFETIL HYDROCHLORIDE
  2. LETAIRIS [Suspect]
     Active Substance: AMBRISENTAN
     Indication: PULMONARY HYPERTENSION
     Dosage: 10 MG, UNK
     Route: 065
     Dates: start: 20120125

REACTIONS (1)
  - Renal disorder [Unknown]
